FAERS Safety Report 25271672 (Version 2)
Quarter: 2025Q2

REPORT INFORMATION
  Report Type: Report from Study
  Country: MX (occurrence: MX)
  Receive Date: 20250506
  Receipt Date: 20250618
  Transmission Date: 20250717
  Serious: Yes (Other)
  Sender: NOVARTIS
  Company Number: MX-002147023-NVSC2025MX072052

PATIENT
  Age: 54 Year
  Sex: Female
  Weight: 54 kg

DRUGS (9)
  1. ELTROMBOPAG OLAMINE [Suspect]
     Active Substance: ELTROMBOPAG OLAMINE
     Indication: Thrombocytopenic purpura
     Dosage: 1 DOSAGE FORM, QD (1 OF 25 MG)
     Route: 048
     Dates: start: 20240418, end: 202407
  2. ELTROMBOPAG OLAMINE [Suspect]
     Active Substance: ELTROMBOPAG OLAMINE
     Route: 065
     Dates: start: 202405, end: 202409
  3. ELTROMBOPAG OLAMINE [Suspect]
     Active Substance: ELTROMBOPAG OLAMINE
     Route: 065
     Dates: end: 202502
  4. ELTROMBOPAG OLAMINE [Suspect]
     Active Substance: ELTROMBOPAG OLAMINE
     Dosage: 1 (25 MG TABLET), QD
     Route: 048
     Dates: end: 202503
  5. ELTROMBOPAG OLAMINE [Suspect]
     Active Substance: ELTROMBOPAG OLAMINE
     Dosage: 1 DOSAGE FORM, QD (1 OF 25 MG)
     Route: 048
     Dates: start: 20250108, end: 20250502
  6. LEVOTHYROXINE [Concomitant]
     Active Substance: LEVOTHYROXINE
     Indication: Hypothyroidism
     Dosage: 1 DOSAGE FORM, QD (1 OF 100 MCG)
     Route: 048
     Dates: start: 2019
  7. METFORMIN [Concomitant]
     Active Substance: METFORMIN HYDROCHLORIDE
     Indication: Glucose tolerance impaired
     Dosage: 1 DOSAGE FORM, QD (1 OF 500 MG)
     Route: 048
     Dates: start: 202501
  8. PREDNISONE [Concomitant]
     Active Substance: PREDNISONE
     Indication: Thrombocytopenic purpura
     Dosage: 1 DOSAGE FORM, QD (1 OF 100 MG)
     Route: 048
     Dates: start: 20240418, end: 202409
  9. PREDNISONE [Concomitant]
     Active Substance: PREDNISONE
     Dosage: 1 DOSAGE FORM, QD (1 OF 20 MG)
     Route: 048
     Dates: start: 20250108, end: 20250502

REACTIONS (6)
  - Thrombocytopenic purpura [Recovered/Resolved]
  - Condition aggravated [Recovered/Resolved]
  - Thrombocytopenic purpura [Recovered/Resolved]
  - Condition aggravated [Recovered/Resolved]
  - Platelet count decreased [Recovered/Resolved]
  - Drug ineffective [Recovered/Resolved]

NARRATIVE: CASE EVENT DATE: 20241201
